FAERS Safety Report 5831620-5 (Version None)
Quarter: 2008Q3

REPORT INFORMATION
  Report Type: 
  Country: None (occurrence: None)
  Receive Date: 20080730
  Receipt Date: 20080716
  Transmission Date: 20090109
  Serious: Yes (Other)
  Sender: FDA-Public Use
  Company Number: 2008AL008594

PATIENT
  Age: 69 Year
  Sex: Female

DRUGS (1)
  1. DIGOXIN [Suspect]
     Dosage: 0.25MG DAILY PO
     Route: 048

REACTIONS (9)
  - ABDOMINAL DISCOMFORT [None]
  - ANOREXIA [None]
  - COLOUR BLINDNESS [None]
  - DIZZINESS [None]
  - DRUG TOXICITY [None]
  - FATIGUE [None]
  - NAUSEA [None]
  - VOMITING [None]
  - WEIGHT DECREASED [None]
